FAERS Safety Report 25452602 (Version 1)
Quarter: 2025Q2

REPORT INFORMATION
  Report Type: Spontaneous
  Country: ES (occurrence: ES)
  Receive Date: 20250618
  Receipt Date: 20250618
  Transmission Date: 20250716
  Serious: Yes (Other)
  Sender: UCB
  Company Number: ES-UCBSA-2025035738

PATIENT
  Age: 66 Year
  Sex: Male

DRUGS (3)
  1. NEUPRO [Suspect]
     Active Substance: ROTIGOTINE
     Indication: Parkinson^s disease
     Dates: start: 2016
  2. NEUPRO [Suspect]
     Active Substance: ROTIGOTINE
     Dates: start: 2016
  3. NEUPRO [Suspect]
     Active Substance: ROTIGOTINE
     Dates: start: 2018

REACTIONS (4)
  - Parkinson^s disease [Unknown]
  - Syncope [Unknown]
  - Depression [Unknown]
  - Rapid eye movement sleep behaviour disorder [Unknown]

NARRATIVE: CASE EVENT DATE: 20160101
